FAERS Safety Report 16642310 (Version 1)
Quarter: 2019Q3

REPORT INFORMATION
  Report Type: Spontaneous
  Country: US (occurrence: US)
  Receive Date: 20190728
  Receipt Date: 20190728
  Transmission Date: 20191004
  Serious: Yes (Disabling)
  Sender: FDA-Public Use
  Company Number: None

PATIENT
  Age: 62 Year
  Sex: Male
  Weight: 164.25 kg

DRUGS (1)
  1. LOSARTAN 100MG TAB [Suspect]
     Active Substance: LOSARTAN
     Indication: HYPERTENSION
     Dosage: ?          QUANTITY:1 TABLET(S);?
     Route: 048

REACTIONS (8)
  - Vertigo [None]
  - Headache [None]
  - Myalgia [None]
  - Dizziness [None]
  - Asthenia [None]
  - Fatigue [None]
  - Nasal congestion [None]
  - Throat irritation [None]

NARRATIVE: CASE EVENT DATE: 20190627
